FAERS Safety Report 11210759 (Version 1)
Quarter: 2015Q2

REPORT INFORMATION
  Report Type: Spontaneous
  Country: US (occurrence: US)
  Receive Date: 20150622
  Receipt Date: 20150622
  Transmission Date: 20150821
  Serious: No
  Sender: FDA-Public Use
  Company Number: US-TAKEDA-2014TUS007131

PATIENT
  Sex: Female
  Weight: 72.56 kg

DRUGS (4)
  1. UNKNOWN INSULIN [Concomitant]
     Indication: DIABETES MELLITUS
     Dosage: 5 UNITS QAM, 15 UNITS QPM
     Route: 058
     Dates: start: 2012
  2. UNK MEDICATION [Concomitant]
     Indication: HYPERTENSION
     Dosage: UNK
     Route: 048
     Dates: start: 1964
  3. UNK MEDICATION [Concomitant]
     Indication: BLOOD CHOLESTEROL INCREASED
     Dosage: UNK
     Route: 048
     Dates: start: 1964
  4. NESINA [Suspect]
     Active Substance: ALOGLIPTIN BENZOATE
     Indication: TYPE 2 DIABETES MELLITUS
     Dosage: 25 MG, QHS
     Route: 048
     Dates: start: 201404

REACTIONS (3)
  - Hair growth abnormal [Not Recovered/Not Resolved]
  - Drug ineffective [Not Recovered/Not Resolved]
  - Alopecia [Not Recovered/Not Resolved]
